FAERS Safety Report 8076219-8 (Version None)
Quarter: 2012Q1

REPORT INFORMATION
  Report Type: 
  Country: None (occurrence: None)
  Receive Date: 20120127
  Receipt Date: 20120120
  Transmission Date: 20120608
  Serious: Yes (Hospitalization)
  Sender: FDA-Public Use
  Company Number: FR-PFIZER INC-2012016202

PATIENT
  Age: 35 Year
  Sex: Male

DRUGS (6)
  1. ELOXATIN [Suspect]
     Indication: COLON NEOPLASM
     Dosage: 1 DF, CYCLIC
     Dates: start: 20110820
  2. FLUOROURACIL [Concomitant]
     Indication: COLON NEOPLASM
     Dosage: UNK
     Dates: start: 20110820
  3. POLARAMINE [Suspect]
     Indication: PREMEDICATION
     Dosage: 1 DF, DAILY
     Dates: start: 20111108, end: 20111108
  4. AVASTIN [Concomitant]
     Indication: COLON NEOPLASM
     Dosage: 25 MG/ML
     Dates: start: 20110820
  5. LEVOLEUCOVORIN CALCIUM [Concomitant]
     Indication: COLON NEOPLASM
     Dosage: UNK
     Dates: start: 20110820
  6. SOLU-MEDROL [Suspect]
     Indication: PREMEDICATION
     Dosage: 1 DF, SINGLE
     Route: 051
     Dates: start: 20111108, end: 20111108

REACTIONS (8)
  - MALAISE [None]
  - TREMOR [None]
  - DIARRHOEA [None]
  - NAUSEA [None]
  - ERYTHEMA [None]
  - FACE OEDEMA [None]
  - ABDOMINAL PAIN UPPER [None]
  - ASTHENIA [None]
